FAERS Safety Report 15691260 (Version 3)
Quarter: 2019Q2

REPORT INFORMATION
  Report Type: Spontaneous
  Country: US (occurrence: US)
  Receive Date: 20181205
  Receipt Date: 20190426
  Transmission Date: 20190711
  Serious: No
  Sender: FDA-Public Use
  Company Number: US-SA-2018SA331044

PATIENT
  Age: 25 Year
  Sex: Female

DRUGS (1)
  1. LUMIZYME [Suspect]
     Active Substance: ALGLUCOSIDASE ALFA
     Indication: GLYCOGEN STORAGE DISEASE TYPE II
     Dosage: 1300 MG, QOW
     Route: 041
     Dates: start: 20100803

REACTIONS (1)
  - Exposure during pregnancy [Unknown]
